FAERS Safety Report 6820114-6 (Version None)
Quarter: 2010Q3

REPORT INFORMATION
  Report Type: 
  Country: None (occurrence: None)
  Receive Date: 20100707
  Receipt Date: 20100628
  Transmission Date: 20110219
  Serious: Yes (Hospitalization, Other)
  Sender: FDA-Public Use
  Company Number: DE-ABBOTT-10P-062-0647278-00

PATIENT
  Age: 36 Year
  Sex: Female

DRUGS (2)
  1. HUMIRA [Suspect]
     Indication: RHEUMATOID ARTHRITIS
     Route: 058
     Dates: start: 20091124, end: 20100223
  2. HUMIRA [Suspect]
     Route: 058
     Dates: start: 20100412, end: 20100501

REACTIONS (2)
  - ADHESION [None]
  - UTERINE LEIOMYOMA [None]
